FAERS Safety Report 23014331 (Version 3)
Quarter: 2023Q4

REPORT INFORMATION
  Report Type: Spontaneous
  Country: US (occurrence: US)
  Receive Date: 20231002
  Receipt Date: 20231221
  Transmission Date: 20240110
  Serious: No
  Sender: FDA-Public Use
  Company Number: US-SANDOZ-SDZ2023US036343

PATIENT
  Sex: Female

DRUGS (1)
  1. ALBUTEROL SULFATE [Suspect]
     Active Substance: ALBUTEROL SULFATE
     Indication: Cough variant asthma
     Dosage: 2-3 INHALATIONS (DEPENDING ON THE SEVERITY OF THE COUGH)
     Route: 055

REACTIONS (7)
  - Cough [Unknown]
  - Product dose omission issue [Unknown]
  - Product use issue [Unknown]
  - Off label use [Unknown]
  - Dysphagia [Unknown]
  - Dyspnoea [Unknown]
  - Product delivery mechanism issue [Unknown]
